FAERS Safety Report 11907236 (Version 4)
Quarter: 2021Q4

REPORT INFORMATION
  Report Type: Spontaneous
  Country: GB (occurrence: GB)
  Receive Date: 20160111
  Receipt Date: 20211122
  Transmission Date: 20220304
  Serious: Yes (Hospitalization, Other)
  Sender: FDA-Public Use
  Company Number: GB-MLMSERVICE-20160104-0123607-2

PATIENT
  Age: 36 Year
  Sex: Female

DRUGS (11)
  1. DESOGESTREL [Interacting]
     Active Substance: DESOGESTREL
     Indication: Polycystic ovaries
     Dosage: 75 MICROGRAM DAILY;
     Route: 048
  2. RIBAVIRIN [Interacting]
     Active Substance: RIBAVIRIN
     Indication: Antiviral treatment
     Route: 048
     Dates: start: 201408
  3. RIBAVIRIN [Interacting]
     Active Substance: RIBAVIRIN
     Indication: Hepatitis C
  4. NORETHINDRONE [Interacting]
     Active Substance: NORETHINDRONE
     Indication: Polycystic ovaries
     Dosage: 15 MILLIGRAM DAILY;
     Dates: start: 2010, end: 201405
  5. NORETHINDRONE [Interacting]
     Active Substance: NORETHINDRONE
     Dosage: 10 MILLIGRAM DAILY;
     Dates: start: 201407
  6. SOFOSBUVIR [Interacting]
     Active Substance: SOFOSBUVIR
     Indication: Antiviral treatment
     Dosage: 400 MILLIGRAM DAILY;
     Route: 048
     Dates: start: 201408
  7. SOFOSBUVIR [Interacting]
     Active Substance: SOFOSBUVIR
     Indication: Hepatitis C
  8. DACLATASVIR [Interacting]
     Active Substance: DACLATASVIR
     Indication: Antiviral treatment
     Dosage: 60 MILLIGRAM DAILY;
     Route: 048
     Dates: start: 201408
  9. DACLATASVIR [Interacting]
     Active Substance: DACLATASVIR
     Indication: Hepatitis C
  10. ETHINYL ESTRADIOL\NORGESTREL [Interacting]
     Active Substance: ETHINYL ESTRADIOL\NORGESTREL
     Indication: Polycystic ovaries
     Dosage: 1 DOSAGE FORMS DAILY; LEVONORGESTREL 150 UM/ ETHINYLESTRADIOL 30 UM; 11 DAYS PRIOR TO STARTING ANTI-
     Dates: start: 20140731
  11. LEVOTHYROXINE SODIUM [Concomitant]
     Active Substance: LEVOTHYROXINE SODIUM
     Dosage: 150 MICROGRAM DAILY;

REACTIONS (3)
  - Drug-induced liver injury [Not Recovered/Not Resolved]
  - Hepatic failure [Recovering/Resolving]
  - Drug interaction [Unknown]

NARRATIVE: CASE EVENT DATE: 20140101
